FAERS Safety Report 7412864-8 (Version None)
Quarter: 2011Q2

REPORT INFORMATION
  Report Type: 
  Country: None (occurrence: None)
  Receive Date: 20110413
  Receipt Date: 20110321
  Transmission Date: 20111010
  Serious: Yes (Hospitalization, Other)
  Sender: FDA-Public Use
  Company Number: B0712356A

PATIENT
  Age: 73 Year
  Sex: Male

DRUGS (5)
  1. PHENOBARBITAL SRT [Concomitant]
  2. LEVETIRACETAM [Suspect]
     Route: 065
  3. TOPIRAMATE [Concomitant]
  4. PHENYTOIN [Concomitant]
  5. LAMOTRIGINE [Suspect]
     Route: 065

REACTIONS (9)
  - STATUS EPILEPTICUS [None]
  - DECREASED VIBRATORY SENSE [None]
  - SLEEP DISORDER [None]
  - POLYDIPSIA PSYCHOGENIC [None]
  - ATAXIA [None]
  - AREFLEXIA [None]
  - HYPERSENSITIVITY [None]
  - IRRITABILITY [None]
  - GRAND MAL CONVULSION [None]
